FAERS Safety Report 24990056 (Version 1)
Quarter: 2025Q1

REPORT INFORMATION
  Report Type: Spontaneous
  Country: ES (occurrence: ES)
  Receive Date: 20250220
  Receipt Date: 20250220
  Transmission Date: 20250408
  Serious: Yes (Other)
  Sender: TEVA
  Company Number: None

PATIENT
  Age: 40 Year
  Sex: Female

DRUGS (3)
  1. ZOLEDRONIC ACID [Suspect]
     Active Substance: ZOLEDRONIC ACID
     Indication: Osteitis deformans
     Route: 042
     Dates: start: 20241118, end: 20241118
  2. CALCIUM CARBONATE\CHOLECALCIFEROL [Concomitant]
     Active Substance: CALCIUM CARBONATE\CHOLECALCIFEROL
     Indication: Product used for unknown indication
     Dosage: 500 MG/ 400 IU CHEWABLE TABLETS ORANGE FLAVOR, 60 TABLETS
     Route: 048
     Dates: start: 20240716
  3. CALCIFEDIOL [Concomitant]
     Active Substance: CALCIFEDIOL
     Indication: Osteitis deformans
     Dosage: 0.266 MG, 10 DRINKABLE AMPOULES OF 1.5 ML
     Route: 048
     Dates: start: 20240716

REACTIONS (3)
  - Influenza like illness [Recovered/Resolved]
  - Chest pain [Recovered/Resolved]
  - Hypertransaminasaemia [Recovered/Resolved]

NARRATIVE: CASE EVENT DATE: 20241119
